FAERS Safety Report 5786151-8 (Version None)
Quarter: 2008Q2

REPORT INFORMATION
  Report Type: 
  Country: None (occurrence: None)
  Receive Date: 20080624
  Receipt Date: 20080617
  Transmission Date: 20081010
  Serious: Yes (Death, Congenital Anomaly)
  Sender: FDA-Public Use
  Company Number: A0710872A

PATIENT
  Sex: Female

DRUGS (5)
  1. PAXIL [Suspect]
     Dates: start: 20020101, end: 20070401
  2. PAXIL CR [Suspect]
     Dates: start: 20020101, end: 20070401
  3. CALCIUM [Concomitant]
     Dates: start: 20050101
  4. TYLENOL [Concomitant]
     Dates: start: 20060101
  5. LORTAB [Concomitant]
     Dates: start: 20060101

REACTIONS (6)
  - CARDIAC FAILURE [None]
  - CARDIAC MURMUR [None]
  - DRUG EXPOSURE DURING PREGNANCY [None]
  - RESPIRATORY FAILURE [None]
  - SEPSIS [None]
  - TALIPES [None]
